FAERS Safety Report 5099339-9 (Version None)
Quarter: 2006Q3

REPORT INFORMATION
  Report Type: 
  Country: None (occurrence: None)
  Receive Date: 20060727
  Receipt Date: 20060514
  Transmission Date: 20061208
  Serious: No
  Sender: FDA-Public Use
  Company Number: FACT0600253

PATIENT
  Age: 31 Year
  Sex: Female
  Weight: 77.1 kg

DRUGS (2)
  1. FACTIVE [Suspect]
     Indication: RESPIRATORY TRACT INFECTION BACTERIAL
     Dosage: 320 MG, QD, ORAL
     Route: 048
     Dates: start: 20060512, end: 20060513
  2. DEPO-PROVERA SUSPENSION/INJ [Concomitant]

REACTIONS (1)
  - RASH [None]
